FAERS Safety Report 10447978 (Version 5)
Quarter: 2014Q3

REPORT INFORMATION
  Report Type: Report from Study
  Country: GB (occurrence: GB)
  Receive Date: 20140911
  Receipt Date: 20140929
  Transmission Date: 20150326
  Serious: Yes (Hospitalization)
  Sender: FDA-Public Use
  Company Number: GB-MERCK-1408GBR014290

PATIENT
  Age: 71 Year
  Sex: Male
  Weight: 65.7 kg

DRUGS (6)
  1. PEMBROLIZUMAB. [Suspect]
     Active Substance: PEMBROLIZUMAB
     Dosage: 2 MG/KG, Q3W, CYCLE: 4
     Route: 042
     Dates: start: 20140801, end: 20140801
  2. LOPERAMIDE HYDROCHLORIDE. [Concomitant]
     Active Substance: LOPERAMIDE HYDROCHLORIDE
     Indication: PROPHYLAXIS
     Dosage: PRN, TOTAL DAILY DOSE: 16 MG.
     Route: 048
     Dates: start: 20140801, end: 20140807
  3. PEMBROLIZUMAB. [Suspect]
     Active Substance: PEMBROLIZUMAB
     Indication: NON-SMALL CELL LUNG CANCER
     Dosage: 2 MG/KG, Q3W, CYCLE: 1-3
     Route: 042
     Dates: start: 20140530, end: 20140711
  4. ACETAMINOPHEN. [Concomitant]
     Active Substance: ACETAMINOPHEN
     Indication: CHEST PAIN
     Dosage: 1 G, QID; FORMULATION: PILL
     Route: 048
     Dates: start: 20140424
  5. IBUPROFEN. [Concomitant]
     Active Substance: IBUPROFEN
     Indication: MUSCULOSKELETAL PAIN
     Dosage: TOTAL DAILY DOSE: 1 APPLICATION, PRN
     Route: 062
     Dates: start: 201405
  6. PHOSPHATE-SANDOZ [Concomitant]
     Indication: HYPERCALCAEMIA OF MALIGNANCY
     Dosage: 2 TABLETS, QD
     Route: 048
     Dates: start: 20140530

REACTIONS (2)
  - Alanine aminotransferase increased [Recovering/Resolving]
  - Aspartate aminotransferase increased [Recovering/Resolving]

NARRATIVE: CASE EVENT DATE: 20140819
